FAERS Safety Report 9294828 (Version 1)
Quarter: 2013Q1

REPORT INFORMATION
  Report Type: Spontaneous
  Country: US (occurrence: None)
  Receive Date: 20121227
  Receipt Date: 20121227
  Transmission Date: 20140127
  Serious: No
  Sender: FDA-Public Use
  Company Number: PHEH2012US022498

PATIENT
  Age: 11 Year
  Sex: Female

DRUGS (5)
  1. AFINITOR [Suspect]
     Indication: TUBEROUS SCLEROSIS
     Dates: start: 20120523
  2. LAMOTRIGINE (LAMOTRIGINE) [Concomitant]
  3. LEVOTHYROXINE (LEVOTHYROXINE) [Concomitant]
  4. LORATADIN (LORATADINE) [Concomitant]
  5. SINGULAIR [Concomitant]

REACTIONS (1)
  - Abdominal discomfort [None]
